FAERS Safety Report 23880072 (Version 1)
Quarter: 2024Q2

REPORT INFORMATION
  Report Type: Report from Study
  Country: US (occurrence: US)
  Receive Date: 20240521
  Receipt Date: 20240521
  Transmission Date: 20240716
  Serious: Yes (Other)
  Sender: FDA-Public Use
  Company Number: US-APELLIS PHARMACEUTICALS-APL-2023-002800

PATIENT

DRUGS (14)
  1. PEGCETACOPLAN [Suspect]
     Active Substance: PEGCETACOPLAN
     Indication: Paroxysmal nocturnal haemoglobinuria
     Dosage: 1080 MILLIGRAM, TWICE WEEKLY
     Route: 058
     Dates: start: 20230629
  2. PEGCETACOPLAN [Suspect]
     Active Substance: PEGCETACOPLAN
     Dosage: 1080 MILLIGRAM, TWICE WEEKLY
     Route: 058
     Dates: start: 20230629
  3. PEGCETACOPLAN [Suspect]
     Active Substance: PEGCETACOPLAN
     Dosage: 1080 MILLIGRAM, TWICE WEEKLY
     Route: 058
     Dates: start: 20230619
  4. PEGCETACOPLAN [Suspect]
     Active Substance: PEGCETACOPLAN
     Dosage: 1080 MILLIGRAM, TWICE WEEKLY
     Route: 058
     Dates: start: 20230619
  5. PEGCETACOPLAN [Suspect]
     Active Substance: PEGCETACOPLAN
     Dosage: 1080 MILLIGRAM, EVERY THREE DAY
     Route: 058
     Dates: start: 20240211
  6. PEGCETACOPLAN [Suspect]
     Active Substance: PEGCETACOPLAN
     Dosage: 1080MG/20ML EVERY THREE DAYS
     Route: 058
     Dates: start: 20230629
  7. ASPIRIN [Concomitant]
     Active Substance: ASPIRIN
     Indication: Product used for unknown indication
  8. ATORVASTATIN [Concomitant]
     Active Substance: ATORVASTATIN
     Indication: Product used for unknown indication
  9. FOLIC ACID [Concomitant]
     Active Substance: FOLIC ACID
     Indication: Product used for unknown indication
  10. FUROSEMIDE [Concomitant]
     Active Substance: FUROSEMIDE
     Indication: Product used for unknown indication
  11. LOSARTAN [Concomitant]
     Active Substance: LOSARTAN
     Indication: Product used for unknown indication
  12. POTASSIUM CHLORIDE [Concomitant]
     Active Substance: POTASSIUM CHLORIDE
     Indication: Product used for unknown indication
     Dosage: EXTENDED RELEASE
  13. CENTRUM SILVER [ASCORBIC ACID;CALCIUM;MINERALS NOS;RETINOL;TOCOPHER... [Concomitant]
     Indication: Product used for unknown indication
  14. ELIQUIS [Concomitant]
     Active Substance: APIXABAN
     Indication: Product used for unknown indication

REACTIONS (19)
  - Hepatic cirrhosis [Unknown]
  - Atrial fibrillation [Not Recovered/Not Resolved]
  - Hepatic steatosis [Unknown]
  - Fluid retention [Not Recovered/Not Resolved]
  - Depression [Unknown]
  - Haemoglobin decreased [Unknown]
  - Blood iron decreased [Unknown]
  - Insomnia [Unknown]
  - Blood testosterone decreased [Not Recovered/Not Resolved]
  - Nasopharyngitis [Recovering/Resolving]
  - Oedema peripheral [Unknown]
  - Fatigue [Not Recovered/Not Resolved]
  - Asthenia [Not Recovered/Not Resolved]
  - Cough [Recovering/Resolving]
  - Drug ineffective [Unknown]
  - Implantable cardiac monitor insertion [Unknown]
  - Peripheral swelling [Unknown]
  - Peripheral swelling [Unknown]
  - Haemoglobin increased [Unknown]
